FAERS Safety Report 10191235 (Version 2)
Quarter: 2014Q2

REPORT INFORMATION
  Report Type: Spontaneous
  Country: IL (occurrence: IL)
  Receive Date: 20140523
  Receipt Date: 20140523
  Transmission Date: 20141212
  Serious: Yes (Other)
  Sender: FDA-Public Use
  Company Number: IL-009507513-1405ISR008127

PATIENT
  Sex: Female

DRUGS (1)
  1. OCSAAR [Suspect]
     Dosage: UNK
     Route: 048

REACTIONS (3)
  - Asphyxia [Not Recovered/Not Resolved]
  - Choking sensation [Not Recovered/Not Resolved]
  - Cough [Not Recovered/Not Resolved]
